FAERS Safety Report 9322207 (Version 1)
Quarter: 2013Q2

REPORT INFORMATION
  Report Type: Spontaneous
  Country: CA (occurrence: CA)
  Receive Date: 20130531
  Receipt Date: 20130531
  Transmission Date: 20140414
  Serious: Yes (Hospitalization)
  Sender: FDA-Public Use
  Company Number: CA-JNJFOC-20130515180

PATIENT
  Age: 57 Year
  Sex: Female
  Weight: 49.9 kg

DRUGS (3)
  1. TYLENOL [Suspect]
     Route: 065
  2. TYLENOL [Suspect]
     Indication: PRODUCT USED FOR UNKNOWN INDICATION
     Route: 065
  3. MAXALT [Concomitant]
     Route: 065

REACTIONS (7)
  - Dyskinesia [Recovered/Resolved]
  - Erythema [Recovered/Resolved]
  - Acne [Recovered/Resolved]
  - Chills [Recovered/Resolved]
  - Fatigue [Recovered/Resolved]
  - Insomnia [Recovered/Resolved]
  - Lymph node pain [Recovered/Resolved]
